FAERS Safety Report 19446334 (Version 3)
Quarter: 2025Q4

REPORT INFORMATION
  Report Type: Report from Study
  Country: EU (occurrence: EU)
  Receive Date: 20210622
  Receipt Date: 20251028
  Transmission Date: 20260117
  Serious: Yes (Death, Other)
  Sender: CELLTRION
  Company Number: EU-CELLTRION INC.-2021ES008273

PATIENT

DRUGS (13)
  1. RITUXIMAB [Suspect]
     Active Substance: RITUXIMAB
     Indication: Immune tolerance induction
     Dosage: RTX (MEDIAN DOSES 3.5 DOSES, RANGE 1-6, ADMINISTERED WEEKLY STARTING FROM DAY -35) X 4 DOSES
     Route: 042
  2. RITUXIMAB [Suspect]
     Active Substance: RITUXIMAB
     Indication: Prophylaxis against transplant rejection
  3. HUMAN IMMUNOGLOBULIN G [Suspect]
     Active Substance: HUMAN IMMUNOGLOBULIN G
     Indication: Immune tolerance induction
     Dosage: 0.4 MG/KG/DAY X 5 DAYS
     Route: 042
  4. MYCOPHENOLATE MOFETIL [Suspect]
     Active Substance: MYCOPHENOLATE MOFETIL
     Indication: Prophylaxis
     Dosage: 5-10 MG/KG/BID X 3 WEEKSUNK
     Route: 065
  5. MYCOPHENOLATE MOFETIL [Suspect]
     Active Substance: MYCOPHENOLATE MOFETIL
     Indication: Graft versus host disease
  6. MYCOPHENOLATE MOFETIL [Suspect]
     Active Substance: MYCOPHENOLATE MOFETIL
     Indication: Immune tolerance induction
  7. MYCOPHENOLATE MOFETIL [Suspect]
     Active Substance: MYCOPHENOLATE MOFETIL
     Indication: Prophylaxis against transplant rejection
  8. AMINO ACIDS\ELECTROLYTES NOS [Suspect]
     Active Substance: AMINO ACIDS\ELECTROLYTES NOS
     Indication: Immune tolerance induction
     Dosage: TPE X 3 SESSIONS
  9. CYCLOPHOSPHAMIDE [Suspect]
     Active Substance: CYCLOPHOSPHAMIDE
     Indication: Prophylaxis
     Dosage: 50 MG/KG/DAY ON DAY +3 AND +4
     Route: 065
  10. CYCLOPHOSPHAMIDE [Suspect]
     Active Substance: CYCLOPHOSPHAMIDE
     Indication: Graft versus host disease
  11. CYCLOPHOSPHAMIDE [Suspect]
     Active Substance: CYCLOPHOSPHAMIDE
     Indication: Prophylaxis against transplant rejection
  12. THYMOGLOBULIN [Suspect]
     Active Substance: LAPINE T-LYMPHOCYTE IMMUNE GLOBULIN
     Indication: Prophylaxis against transplant rejection
     Dosage: 2 MG/KG, EVERY 1 DAY (DAYS -6, -5 AND -4 )
     Route: 065
  13. BUSULFAN [Suspect]
     Active Substance: BUSULFAN
     Indication: Prophylaxis against transplant rejection
     Dosage: 3.2 MG/KG, EVERY 1 DAY (ON DAYS -6 TO -3)
     Route: 042

REACTIONS (4)
  - Thrombotic microangiopathy [Fatal]
  - Bacteraemia [Unknown]
  - Off label use [Unknown]
  - Drug effective for unapproved indication [Unknown]
